FAERS Safety Report 8263807-9 (Version None)
Quarter: 2012Q2

REPORT INFORMATION
  Report Type: 
  Country: None (occurrence: None)
  Receive Date: 20120405
  Receipt Date: 20120328
  Transmission Date: 20120825
  Serious: Yes (Hospitalization, Other)
  Sender: FDA-Public Use
  Company Number: JP-ALLERGAN-1203429US

PATIENT
  Age: 71 Year
  Sex: Male
  Weight: 52.1 kg

DRUGS (7)
  1. EPINASTINE HYDROCHLORIDE [Suspect]
     Indication: ECZEMA
     Dosage: 20 MG, QD
     Route: 048
     Dates: start: 20111222, end: 20120104
  2. EPINAZION [Suspect]
     Indication: ECZEMA
     Dosage: 20 MG, QD
     Route: 048
     Dates: start: 20120105, end: 20120119
  3. IPD [Suspect]
     Indication: ECZEMA
     Dosage: 300 MG, QD
     Route: 048
     Dates: start: 20111222, end: 20120119
  4. RABEPRAZOLE SODIUM [Suspect]
     Indication: GASTRIC ULCER
     Dosage: 10 MG, QD
     Dates: start: 20111101, end: 20120116
  5. MUCOSTA [Suspect]
     Indication: ENCHONDROMA
     Dosage: 300 MG, QD
     Dates: start: 20120101, end: 20120120
  6. CLOBETASOL PROPIONATE [Concomitant]
     Dosage: UNK
     Dates: start: 20111202
  7. CONFATANIN [Suspect]
     Indication: ENCHONDROMA
     Dosage: 180 MG, QD
     Route: 048
     Dates: start: 20120101, end: 20120120

REACTIONS (6)
  - PROTHROMBIN TIME SHORTENED [None]
  - LIVER DISORDER [None]
  - CHOLESTASIS [None]
  - DECREASED APPETITE [None]
  - PRURITUS [None]
  - SEPSIS [None]
